FAERS Safety Report 25167834 (Version 1)
Quarter: 2025Q2

REPORT INFORMATION
  Report Type: Spontaneous
  Country: US (occurrence: US)
  Receive Date: 20250407
  Receipt Date: 20250407
  Transmission Date: 20250717
  Serious: No
  Sender: PFIZER
  Company Number: US-PFIZER INC-PV202400126317

PATIENT
  Age: 67 Year
  Sex: Female

DRUGS (1)
  1. TUKYSA [Suspect]
     Active Substance: TUCATINIB
     Dosage: 300 MG (2 TABLETS), 2X/DAY
     Route: 048

REACTIONS (1)
  - Brain fog [Unknown]
